FAERS Safety Report 21772407 (Version 3)
Quarter: 2022Q4

REPORT INFORMATION
  Report Type: Report from Study
  Country: GB (occurrence: None)
  Receive Date: 20221223
  Receipt Date: 20221227
  Transmission Date: 20230113
  Serious: Yes (Hospitalization)
  Sender: FDA-Public Use
  Company Number: GB-ROCHE-3245536

PATIENT
  Age: 82 Year
  Sex: Male
  Weight: 65.8 kg

DRUGS (3)
  1. ATEZOLIZUMAB [Suspect]
     Active Substance: ATEZOLIZUMAB
     Indication: Undifferentiated nasopharyngeal carcinoma
     Route: 041
     Dates: start: 20221117, end: 20221117
  2. RAMIPRIL [Concomitant]
     Active Substance: RAMIPRIL
     Dates: start: 2017, end: 20221207
  3. ALLOPURINOL [Concomitant]
     Active Substance: ALLOPURINOL
     Dates: start: 1998

REACTIONS (1)
  - Hyponatraemia [Not Recovered/Not Resolved]
